FAERS Safety Report 6801661-X (Version None)
Quarter: 2010Q2

REPORT INFORMATION
  Report Type: 
  Country: None (occurrence: None)
  Receive Date: 20100629
  Receipt Date: 20100625
  Transmission Date: 20101027
  Serious: Yes (Hospitalization)
  Sender: FDA-Public Use
  Company Number: US-CEPHALON-2010003429

PATIENT
  Age: 84 Year

DRUGS (2)
  1. TREANDA [Suspect]
     Indication: LYMPHOMA
     Route: 042
  2. RITUXAN [Concomitant]
     Indication: LYMPHOMA

REACTIONS (1)
  - MYELOFIBROSIS [None]
